FAERS Safety Report 25625065 (Version 6)
Quarter: 2025Q4

REPORT INFORMATION
  Report Type: Spontaneous
  Country: US (occurrence: US)
  Receive Date: 20250731
  Receipt Date: 20251017
  Transmission Date: 20260118
  Serious: Yes (Other)
  Sender: KARYOPHARM THERAPEUTICS
  Company Number: US-KARYOPHARM-2025KPT100555

PATIENT

DRUGS (18)
  1. SELINEXOR [Suspect]
     Active Substance: SELINEXOR
     Indication: Plasma cell myeloma
     Dosage: 40 MG WEEKLY
     Route: 048
     Dates: start: 20250627
  2. POMALYST [Concomitant]
     Active Substance: POMALIDOMIDE
  3. ACETAMINOPHEN [Concomitant]
     Active Substance: ACETAMINOPHEN
  4. ALBUTEROL SULFATE [Concomitant]
     Active Substance: ALBUTEROL SULFATE
  5. BACTRIM DS [Concomitant]
     Active Substance: SULFAMETHOXAZOLE\TRIMETHOPRIM
  6. BREZTRI AEROSPHERE [BUDESONIDE;FORMOTEROL FUMARATE;GLYCOPYRRONIUM BROM [Concomitant]
  7. CARVEDILOL [Concomitant]
     Active Substance: CARVEDILOL
  8. DEXAMETHASONE [Concomitant]
     Active Substance: DEXAMETHASONE
  9. ELIQUIS [Concomitant]
     Active Substance: APIXABAN
  10. ENTRESTO [Concomitant]
     Active Substance: SACUBITRIL\VALSARTAN
  11. ALBUTEROL\IPRATROPIUM [Concomitant]
     Active Substance: ALBUTEROL\IPRATROPIUM
  12. JARDIANCE [Concomitant]
     Active Substance: EMPAGLIFLOZIN
  13. METHIMAZOLE [Concomitant]
     Active Substance: METHIMAZOLE
  14. PANTOPRAZOLE SODIUM [Concomitant]
     Active Substance: PANTOPRAZOLE SODIUM
  15. SULFAMETHAZINE [Concomitant]
     Active Substance: SULFAMETHAZINE
  16. VALACYCLOVIR [Concomitant]
     Active Substance: VALACYCLOVIR HYDROCHLORIDE
  17. ZOMETA [Concomitant]
     Active Substance: ZOLEDRONIC ACID
  18. OXYCODONE [Concomitant]
     Active Substance: OXYCODONE

REACTIONS (5)
  - Blood potassium decreased [Unknown]
  - Blood phosphorus decreased [Unknown]
  - Neuralgia [Not Recovered/Not Resolved]
  - Sciatica [Unknown]
  - Product dose omission issue [Unknown]

NARRATIVE: CASE EVENT DATE: 20250101
